FAERS Safety Report 6158410-0 (Version None)
Quarter: 2009Q2

REPORT INFORMATION
  Report Type: 
  Country: None (occurrence: None)
  Receive Date: 20090417
  Receipt Date: 20090415
  Transmission Date: 20091009
  Serious: Yes (Life-Threatening)
  Sender: FDA-Public Use
  Company Number: CH-BRISTOL-MYERS SQUIBB COMPANY-14588354

PATIENT
  Age: 60 Year
  Sex: Male

DRUGS (9)
  1. CARBOPLATIN [Suspect]
     Indication: NON-SMALL CELL LUNG CANCER
     Route: 042
     Dates: start: 20090106, end: 20090106
  2. PACLITAXEL [Suspect]
     Indication: NON-SMALL CELL LUNG CANCER
     Route: 042
     Dates: start: 20090106, end: 20090106
  3. CP-751,871 [Suspect]
     Indication: NON-SMALL CELL LUNG CANCER
     Route: 042
     Dates: start: 20090106, end: 20090106
  4. BRUFEN [Concomitant]
     Indication: PAIN
     Dates: start: 20090109
  5. MORPHINE [Concomitant]
     Indication: PAIN
     Dosage: 1 DOSAGE FORM=3-6DROPS
     Dates: start: 20081217
  6. MOTILIUM [Concomitant]
     Indication: NAUSEA
     Dates: start: 20090223
  7. METFORMIN HCL [Concomitant]
     Indication: BLOOD GLUCOSE INCREASED
     Dates: start: 20090222
  8. IMODIUM [Concomitant]
     Indication: DIARRHOEA
     Dates: start: 20090223
  9. PANTOZOL [Concomitant]
     Indication: DYSPEPSIA
     Dates: start: 20090127

REACTIONS (1)
  - PLATELET COUNT DECREASED [None]
